FAERS Safety Report 9505654 (Version 1)
Quarter: 2013Q1

REPORT INFORMATION
  Report Type: Spontaneous
  Country: US (occurrence: None)
  Receive Date: 20130220
  Receipt Date: 20130220
  Transmission Date: 20140127
  Serious: No
  Sender: FDA-Public Use
  Company Number: 1000041140

PATIENT
  Age: 59 Year
  Sex: Female

DRUGS (15)
  1. VIIBRYD [Suspect]
     Indication: MAJOR DEPRESSION
     Route: 048
     Dates: start: 20121119, end: 20121210
  2. CORTEF [Suspect]
     Indication: ADDISON^S DISEASE
  3. DEPLIN (CALCIUM LEVOMEOLATE) (CALCIUM LEVOMEFOLATE) [Concomitant]
  4. GABAPENTIN (GABAPENTIN) (GABAPENTIN) [Concomitant]
  5. CLONAZEPAM (CLONAZEPAM) (CLONAZEPAM) [Concomitant]
  6. SOMA (CARISOPRODOL) (CARISOPRODOL) [Concomitant]
  7. LORAZEPAM (LORAZEPAM) (LORAZEPAM) [Concomitant]
  8. ZYRTEC (CETIRIZINE HYDROCHLORIDE) (CETIRIZINE HYDROCHLORIDE) [Concomitant]
  9. FLONASE (FLUTICASONE PROPIONAE) (FLUTICASONE PROPIONATE) [Concomitant]
  10. CO Q 10 (UBIDECAENONE) (UBIDECARENONE) [Concomitant]
  11. VITAMIN D (VITAMIN D) (VITAMIN D) [Concomitant]
  12. SYNTHROID (LEVOTHYROXIE SODIUM) (LEVOTHYROXINE SODIUM) [Concomitant]
  13. VITRON -C (VITRON-C) (VITRON-C) [Concomitant]
  14. FISH OIL (FISH OIL) (FISH OIL) [Concomitant]
  15. FENTANYL (FENTANYL) (FENTANYL) [Concomitant]

REACTIONS (9)
  - Migraine [None]
  - Chills [None]
  - Nausea [None]
  - Dry mouth [None]
  - Photosensitivity reaction [None]
  - Fatigue [None]
  - Palpitations [None]
  - Hyperhidrosis [None]
  - Parosmia [None]
